FAERS Safety Report 17561949 (Version 1)
Quarter: 2020Q1

REPORT INFORMATION
  Report Type: Spontaneous
  Country: GB (occurrence: GB)
  Receive Date: 20200319
  Receipt Date: 20200319
  Transmission Date: 20200409
  Serious: Yes (Death, Congenital Anomaly, Other)
  Sender: FDA-Public Use
  Company Number: GB-MYLANLABS-2020M1029013

PATIENT

DRUGS (3)
  1. DIDANOSINE. [Suspect]
     Active Substance: DIDANOSINE
     Indication: HIV INFECTION
     Dosage: 400 MG, QD, FREQUENCY OF PRODUCT : 1D
     Route: 064
     Dates: start: 20040122
  2. RETROVIR [Suspect]
     Active Substance: ZIDOVUDINE
     Indication: HIV INFECTION
     Dosage: 250 MG (500MG, QD), FREQUENCY OF PRODUCT : 2D
     Route: 064
     Dates: start: 20000122
  3. NEVIRAPINE. [Suspect]
     Active Substance: NEVIRAPINE
     Indication: HIV INFECTION
     Dosage: 400 MG (400MG, QD),FREQUENCY OF PRODUCT : 1D
     Route: 064
     Dates: start: 20000122

REACTIONS (4)
  - Stillbirth [Fatal]
  - Foetal exposure during pregnancy [Recovered/Resolved]
  - Congenital central nervous system anomaly [Fatal]
  - Pulmonary hypoplasia [Fatal]

NARRATIVE: CASE EVENT DATE: 200406
